FAERS Safety Report 9956026 (Version 1)
Quarter: 2014Q1

REPORT INFORMATION
  Report Type: Report from Study
  Country: US (occurrence: US)
  Receive Date: 20140304
  Receipt Date: 20140304
  Transmission Date: 20141002
  Serious: No
  Sender: FDA-Public Use
  Company Number: US-ABBVIE-13P-163-1087134-00

PATIENT
  Age: 59 Year
  Sex: Male
  Weight: 91.25 kg

DRUGS (2)
  1. HUMIRA [Suspect]
     Indication: COLITIS ULCERATIVE
     Dates: start: 201209
  2. METOPROLOL [Concomitant]
     Indication: HYPERTENSION

REACTIONS (2)
  - Diarrhoea haemorrhagic [Recovering/Resolving]
  - Colitis ulcerative [Recovering/Resolving]
